FAERS Safety Report 7547394-6 (Version None)
Quarter: 2011Q2

REPORT INFORMATION
  Report Type: 
  Country: None (occurrence: None)
  Receive Date: 20110614
  Receipt Date: 20110609
  Transmission Date: 20111010
  Serious: Yes (Hospitalization)
  Sender: FDA-Public Use
  Company Number: FR-ABBOTT-11P-056-0731463-00

PATIENT
  Age: 13 Year
  Sex: Male

DRUGS (6)
  1. RUFINAMIDE [Suspect]
     Route: 048
     Dates: start: 20100930, end: 20101020
  2. RUFINAMIDE [Suspect]
     Indication: GENERALISED NON-CONVULSIVE EPILEPSY
     Route: 048
     Dates: start: 20100726, end: 20100929
  3. RITALIN [Concomitant]
     Indication: PRODUCT USED FOR UNKNOWN INDICATION
  4. URBANYL [Concomitant]
     Indication: PRODUCT USED FOR UNKNOWN INDICATION
  5. DEPAKENE [Suspect]
     Indication: GENERALISED NON-CONVULSIVE EPILEPSY
     Route: 048
     Dates: end: 20101101
  6. TOPIRAMATE [Concomitant]
     Indication: PRODUCT USED FOR UNKNOWN INDICATION
     Dates: end: 20101007

REACTIONS (3)
  - TREMOR [None]
  - EDUCATIONAL PROBLEM [None]
  - IRRITABILITY [None]
